FAERS Safety Report 5409314-X (Version None)
Quarter: 2007Q3

REPORT INFORMATION
  Report Type: 
  Country: None (occurrence: None)
  Receive Date: 20070807
  Receipt Date: 20070731
  Transmission Date: 20080115
  Serious: Yes (Other)
  Sender: FDA-Public Use
  Company Number: GXKR2007DE06543

PATIENT
  Age: 55 Year
  Sex: Male
  Weight: 84 kg

DRUGS (1)
  1. AMOCLAV (NGX)(AMOXICILLIN, CLAVULANATE) FILM-COATED TABLET, 875/125MG [Suspect]
     Indication: BRONCHITIS
     Dosage: 875/125 MG, BID, ORAL
     Route: 048
     Dates: start: 20070331, end: 20070415

REACTIONS (9)
  - ALANINE AMINOTRANSFERASE INCREASED [None]
  - ASPARTATE AMINOTRANSFERASE INCREASED [None]
  - BLOOD ALKALINE PHOSPHATASE INCREASED [None]
  - BLOOD CHOLESTEROL INCREASED [None]
  - DIARRHOEA [None]
  - GAMMA-GLUTAMYLTRANSFERASE INCREASED [None]
  - GLUTAMATE DEHYDROGENASE INCREASED [None]
  - HYPERBILIRUBINAEMIA [None]
  - JAUNDICE [None]
